FAERS Safety Report 22356340 (Version 1)
Quarter: 2023Q2

REPORT INFORMATION
  Report Type: Spontaneous
  Country: US (occurrence: None)
  Receive Date: 20230523
  Receipt Date: 20230523
  Transmission Date: 20230722
  Serious: No
  Sender: FDA-Public Use
  Company Number: None

PATIENT

DRUGS (2)
  1. TACROLIMUS [Suspect]
     Active Substance: TACROLIMUS
  2. MYCOPHENOLATE MOFETIL [Suspect]
     Active Substance: MYCOPHENOLATE MOFETIL

REACTIONS (7)
  - Product prescribing issue [None]
  - Incorrect dose administered [None]
  - Inappropriate schedule of product administration [None]
  - Product label confusion [None]
  - Product communication issue [None]
  - Product dispensing issue [None]
  - Product prescribing error [None]
